FAERS Safety Report 6674768-8 (Version None)
Quarter: 2010Q2

REPORT INFORMATION
  Report Type: 
  Country: None (occurrence: None)
  Receive Date: 20100409
  Receipt Date: 20100329
  Transmission Date: 20101027
  Serious: Yes (Other)
  Sender: FDA-Public Use
  Company Number: US-PFIZER INC-2009300005

PATIENT
  Sex: Male
  Weight: 87.089 kg

DRUGS (3)
  1. CHANTIX [Suspect]
     Indication: SMOKING CESSATION THERAPY
     Dosage: 0.5 MG, 1X/DAY
     Dates: start: 20091001
  2. CHANTIX [Suspect]
     Dosage: 0.5 MG, 2X/DAY
     Dates: start: 20091001, end: 20091001
  3. CHANTIX [Suspect]
     Dosage: UNK
     Dates: start: 20091109, end: 20091116

REACTIONS (2)
  - CONTUSION [None]
  - TENDON RUPTURE [None]
